FAERS Safety Report 5280387-0 (Version None)
Quarter: 2007Q1

REPORT INFORMATION
  Report Type: 
  Country: None (occurrence: None)
  Receive Date: 20070326
  Receipt Date: 20070326
  Transmission Date: 20070707
  Serious: Yes (Life-Threatening, Hospitalization, Other)
  Sender: FDA-Public Use
  Company Number: None

PATIENT
  Age: 23 Year
  Sex: Male
  Weight: 80.3 kg

DRUGS (3)
  1. METHYL SALICYLATE PFIZER [Suspect]
     Indication: MUSCLE SPASMS
     Dosage: 15% AS NEEDED TOP
     Route: 061
  2. TOPIRAMATE [Concomitant]
  3. OMEPRAZOLE [Concomitant]

REACTIONS (3)
  - DYSPNOEA [None]
  - MUSCLE SPASMS [None]
  - SWOLLEN TONGUE [None]
